FAERS Safety Report 10365666 (Version 1)
Quarter: 2014Q3

REPORT INFORMATION
  Report Type: Spontaneous
  Country: BR (occurrence: BR)
  Receive Date: 20140806
  Receipt Date: 20140806
  Transmission Date: 20150326
  Serious: Yes (Other)
  Sender: FDA-Public Use
  Company Number: CHPA2014BR010202

PATIENT
  Age: 89 Year
  Sex: Female

DRUGS (1)
  1. BENEFIBER [Suspect]
     Active Substance: STARCH, WHEAT
     Indication: CONSTIPATION
     Dosage: UNK
     Route: 065

REACTIONS (2)
  - Osteoporosis [Not Recovered/Not Resolved]
  - Infarction [Not Recovered/Not Resolved]
